FAERS Safety Report 9463088 (Version 1)
Quarter: 2013Q3

REPORT INFORMATION
  Report Type: Spontaneous
  Country: US (occurrence: US)
  Receive Date: 20130816
  Receipt Date: 20130816
  Transmission Date: 20140515
  Serious: No
  Sender: FDA-Public Use
  Company Number: US-009507513-1308USA001872

PATIENT
  Age: 21 Year
  Sex: Female

DRUGS (1)
  1. FINASTERIDE [Suspect]
     Indication: ACNE
     Dosage: 5 MG, QD
     Route: 048

REACTIONS (4)
  - Dry eye [Unknown]
  - Off label use [Unknown]
  - Drug administration error [Unknown]
  - Therapeutic response unexpected [Unknown]
